FAERS Safety Report 4980275-0 (Version None)
Quarter: 2006Q2

REPORT INFORMATION
  Report Type: 
  Country: None (occurrence: None)
  Receive Date: 20060420
  Receipt Date: 20060420
  Transmission Date: 20061013
  Serious: No
  Sender: FDA-Public Use
  Company Number: None

PATIENT
  Age: 81 Year
  Sex: Male
  Weight: 76.7 kg

DRUGS (7)
  1. WARFARIN SODIUM [Suspect]
  2. GLIPIZIDE [Concomitant]
  3. LISINOPRIL [Concomitant]
  4. LORATADINE [Concomitant]
  5. RANITIDINE HCL [Concomitant]
  6. CELECOXIB [Concomitant]
  7. EPOETIN ALFA, RECOMB [Concomitant]

REACTIONS (1)
  - HAEMORRHAGE [None]
